FAERS Safety Report 6145075-7 (Version None)
Quarter: 2009Q2

REPORT INFORMATION
  Report Type: 
  Country: None (occurrence: None)
  Receive Date: 20090402
  Receipt Date: 20081205
  Transmission Date: 20091009
  Serious: No
  Sender: FDA-Public Use
  Company Number: 1000004706

PATIENT
  Age: 70 Year
  Sex: Female

DRUGS (7)
  1. BYSTOLIC [Suspect]
     Indication: EXTRASYSTOLES
     Dosage: 5 MG (5 MG, 1 IN 1 D), ORAL
     Route: 048
     Dates: start: 20081204
  2. ENBREL [Concomitant]
  3. LIPITOR [Concomitant]
  4. ASPIRIN [Concomitant]
  5. FOLIC ACID [Concomitant]
  6. VITAMIN D [Concomitant]
  7. ACTONEL [Concomitant]

REACTIONS (1)
  - DIARRHOEA [None]
